FAERS Safety Report 12610839 (Version 2)
Quarter: 2016Q3

REPORT INFORMATION
  Report Type: Report from Study
  Country: US (occurrence: US)
  Receive Date: 20160801
  Receipt Date: 20160901
  Transmission Date: 20161109
  Serious: Yes (Hospitalization)
  Sender: FDA-Public Use
  Company Number: US-009507513-1607USA011850

PATIENT
  Age: 70 Year
  Sex: Male

DRUGS (1)
  1. NOXAFIL [Suspect]
     Active Substance: POSACONAZOLE
     Dosage: UNK
     Route: 048
     Dates: start: 20160706, end: 20160805

REACTIONS (2)
  - Malaise [Unknown]
  - Adverse event [Unknown]

NARRATIVE: CASE EVENT DATE: 201607
